FAERS Safety Report 19264044 (Version 1)
Quarter: 2021Q2

REPORT INFORMATION
  Report Type: Spontaneous
  Country: US (occurrence: US)
  Receive Date: 20210517
  Receipt Date: 20210517
  Transmission Date: 20210717
  Serious: No
  Sender: FDA-Public Use
  Company Number: US-ALLERGAN-2027035US

PATIENT
  Age: 43 Year
  Sex: Male

DRUGS (1)
  1. CONDYLOX [Suspect]
     Active Substance: PODOFILOX
     Indication: ANOGENITAL WARTS
     Dosage: 1 DF, QHS
     Route: 061
     Dates: start: 20200713, end: 20200715

REACTIONS (6)
  - Pain of skin [Recovered/Resolved]
  - Testicular disorder [Recovered/Resolved]
  - Therapy cessation [Unknown]
  - Skin burning sensation [Recovered/Resolved]
  - Constipation [Recovered/Resolved]
  - Off label use [Unknown]

NARRATIVE: CASE EVENT DATE: 20200713
